FAERS Safety Report 18717193 (Version 1)
Quarter: 2021Q1

REPORT INFORMATION
  Report Type: Spontaneous
  Country: US (occurrence: US)
  Receive Date: 20210108
  Receipt Date: 20210108
  Transmission Date: 20210419
  Serious: Yes (Other)
  Sender: FDA-Public Use
  Company Number: US-PFIZER INC-2021003609

PATIENT

DRUGS (2)
  1. ETIZOLAM [Suspect]
     Active Substance: ETIZOLAM
     Dosage: UNK
     Route: 048
     Dates: start: 2015, end: 2015
  2. XANAX [Suspect]
     Active Substance: ALPRAZOLAM
     Dosage: UNK
     Route: 048
     Dates: start: 2015, end: 2015

REACTIONS (7)
  - Pulmonary oedema [Unknown]
  - Sedation [Unknown]
  - Product counterfeit [Unknown]
  - Depressed level of consciousness [Unknown]
  - Counterfeit product administered [Unknown]
  - Cardiac failure congestive [Unknown]
  - Intentional product misuse [Unknown]

NARRATIVE: CASE EVENT DATE: 2015
